FAERS Safety Report 12220174 (Version 2)
Quarter: 2016Q2

REPORT INFORMATION
  Report Type: Spontaneous
  Country: LB (occurrence: LB)
  Receive Date: 20160330
  Receipt Date: 20160406
  Transmission Date: 20160815
  Serious: Yes (Other)
  Sender: FDA-Public Use
  Company Number: LB-ROCHE-1733329

PATIENT
  Age: 54 Year
  Sex: Female

DRUGS (4)
  1. PLAVIX [Concomitant]
     Active Substance: CLOPIDOGREL BISULFATE
  2. ASPICORE [Concomitant]
  3. LUCENTIS [Suspect]
     Active Substance: RANIBIZUMAB
     Indication: RETINAL VEIN OCCLUSION
     Route: 047
     Dates: start: 20151009
  4. LUCENTIS [Suspect]
     Active Substance: RANIBIZUMAB
     Route: 047
     Dates: start: 20151101

REACTIONS (1)
  - Visual acuity reduced [Not Recovered/Not Resolved]
